FAERS Safety Report 24567028 (Version 1)
Quarter: 2024Q4

REPORT INFORMATION
  Report Type: Spontaneous
  Country: GB (occurrence: GB)
  Receive Date: 20241030
  Receipt Date: 20241030
  Transmission Date: 20250115
  Serious: Yes (Other)
  Sender: EISAI
  Company Number: GB-MHRA-TPP16163886C9622064YC1729761455544

PATIENT
  Age: 91 Year
  Sex: Male
  Weight: 74 kg

DRUGS (11)
  1. DONEPEZIL [Suspect]
     Active Substance: DONEPEZIL
     Indication: Ill-defined disorder
     Route: 048
     Dates: start: 20241023
  2. FOLIC ACID [Concomitant]
     Active Substance: FOLIC ACID
     Indication: Ill-defined disorder
     Route: 048
     Dates: start: 20240122, end: 20241023
  3. EVOLVE HYPROMELLOSE [Concomitant]
     Indication: Ill-defined disorder
     Dosage: PUT INTO AFFECTED EYE(S) WHEN REQUIRED
     Route: 047
     Dates: start: 20240219
  4. FINASTERIDE [Concomitant]
     Active Substance: FINASTERIDE
     Indication: Ill-defined disorder
     Route: 065
     Dates: start: 20240510
  5. LACTULOSE [Concomitant]
     Active Substance: LACTULOSE
     Indication: Ill-defined disorder
     Dosage: TAKE TWO TO THREE 5ML SPOONFUL^S TWICE A DAY AS NEEDED
     Route: 065
     Dates: start: 20240510
  6. TIMOLOL [Concomitant]
     Active Substance: TIMOLOL\TIMOLOL MALEATE
     Indication: Ill-defined disorder
     Dosage: ONE DROP ONCE DAILY TO BOTH EYES
     Route: 047
     Dates: start: 20240711
  7. CHOLECALCIFEROL [Concomitant]
     Active Substance: CHOLECALCIFEROL
     Indication: Ill-defined disorder
     Route: 065
     Dates: start: 20240711
  8. ACETAMINOPHEN [Concomitant]
     Active Substance: ACETAMINOPHEN
     Indication: Ill-defined disorder
     Dosage: TAKE TWO TABLETS THREE TIMES A DAY WHEN REQUIRED
     Route: 048
     Dates: start: 20240711, end: 20241023
  9. TAMSULOSIN HYDROCHLORIDE [Concomitant]
     Active Substance: TAMSULOSIN HYDROCHLORIDE
     Indication: Ill-defined disorder
     Dosage: TAKE ONE DAILY FOR URINE SYMPTOMS
     Route: 065
     Dates: start: 20240711
  10. DORZOLAMIDE [Concomitant]
     Active Substance: DORZOLAMIDE
     Indication: Ill-defined disorder
     Dosage: ONE DROP INTO BOTH EYES TWICE A DAY
     Route: 047
     Dates: start: 20240829
  11. RIVAROXABAN [Concomitant]
     Active Substance: RIVAROXABAN
     Indication: Ill-defined disorder
     Dosage: TAKE ONE TABLET ONCE A DAY WITH FOOD
     Route: 048
     Dates: start: 20240930

REACTIONS (2)
  - Confusional state [Recovered/Resolved]
  - Nightmare [Recovered/Resolved]

NARRATIVE: CASE EVENT DATE: 20241001
